FAERS Safety Report 5103374-1 (Version None)
Quarter: 2006Q3

REPORT INFORMATION
  Report Type: 
  Country: None (occurrence: None)
  Receive Date: 20060908
  Receipt Date: 20060828
  Transmission Date: 20061208
  Serious: Yes (Hospitalization)
  Sender: FDA-Public Use
  Company Number: DE-2006-003817

PATIENT
  Age: 20 Year
  Sex: Female

DRUGS (1)
  1. YASMIN [Suspect]
     Indication: OEDEMA

REACTIONS (6)
  - FAECES HARD [None]
  - GASTROINTESTINAL MOTILITY DISORDER [None]
  - INTERVERTEBRAL DISC OPERATION [None]
  - LACTOSE INTOLERANCE [None]
  - REACTION TO DRUG EXCIPIENTS [None]
  - SUBILEUS [None]
